FAERS Safety Report 11659517 (Version 3)
Quarter: 2015Q4

REPORT INFORMATION
  Report Type: Spontaneous
  Country: CN (occurrence: CN)
  Receive Date: 20151026
  Receipt Date: 20151125
  Transmission Date: 20160304
  Serious: Yes (Death, Disabling, Other)
  Sender: FDA-Public Use
  Company Number: CN-CELGENE-CHN-2015103524

PATIENT
  Age: 74 Year
  Sex: Male

DRUGS (4)
  1. REVLIMID [Suspect]
     Active Substance: LENALIDOMIDE
     Route: 048
     Dates: end: 20150901
  2. OMEPRAZOLE. [Concomitant]
     Active Substance: OMEPRAZOLE
     Indication: GASTRITIS PROPHYLAXIS
     Route: 048
     Dates: start: 20141229, end: 20150901
  3. REVLIMID [Suspect]
     Active Substance: LENALIDOMIDE
     Indication: PLASMA CELL MYELOMA
     Route: 048
     Dates: start: 20141229
  4. OMEPRAZOLE. [Concomitant]
     Active Substance: OMEPRAZOLE
     Indication: DYSPEPSIA

REACTIONS (5)
  - Arthralgia [Unknown]
  - Tremor [Recovered/Resolved with Sequelae]
  - Hypoaesthesia [Unknown]
  - Plasma cell myeloma [Fatal]
  - Fall [Unknown]

NARRATIVE: CASE EVENT DATE: 201502
